FAERS Safety Report 23350958 (Version 1)
Quarter: 2023Q4

REPORT INFORMATION
  Report Type: Spontaneous
  Country: US (occurrence: US)
  Receive Date: 20231229
  Receipt Date: 20231229
  Transmission Date: 20240109
  Serious: Yes (Other)
  Sender: FDA-Public Use
  Company Number: US-BAUSCHBL-2023BNL013559

PATIENT
  Sex: Female

DRUGS (1)
  1. BLINK TEARS PRESERVATIVE FREE [Suspect]
     Active Substance: POLYETHYLENE GLYCOL 400
     Indication: Product used for unknown indication
     Route: 047

REACTIONS (5)
  - Cataract [Unknown]
  - Eye irritation [Recovering/Resolving]
  - Eye pain [Recovering/Resolving]
  - Ocular hyperaemia [Recovering/Resolving]
  - Lacrimation increased [Recovering/Resolving]
